FAERS Safety Report 11969633 (Version 4)
Quarter: 2016Q2

REPORT INFORMATION
  Report Type: Report from Study
  Country: DE (occurrence: DE)
  Receive Date: 20160128
  Receipt Date: 20160429
  Transmission Date: 20160815
  Serious: Yes (Hospitalization)
  Sender: FDA-Public Use
  Company Number: DE-ROCHE-1695987

PATIENT
  Age: 56 Year
  Sex: Female
  Weight: 68.6 kg

DRUGS (10)
  1. MOXONIDIN [Concomitant]
     Active Substance: MOXONIDINE
     Route: 048
     Dates: start: 201012
  2. DEKRISTOL [Concomitant]
     Active Substance: CHOLECALCIFEROL
     Dosage: 20000 U
     Route: 048
     Dates: start: 20140625, end: 201509
  3. VALSARTAN HENNIG [Concomitant]
     Route: 048
     Dates: start: 20150702
  4. DORMICUM [Concomitant]
     Active Substance: MIDAZOLAM\MIDAZOLAM HYDROCHLORIDE
     Route: 042
     Dates: start: 20151126, end: 20151126
  5. PREDNISONE. [Suspect]
     Active Substance: PREDNISONE
     Indication: TEMPORAL ARTERITIS
     Dosage: DATE OF MOST RECENT DOSE PRIOR TO AE ONSET: 19/JUL/2015?26 WEEKS OF PREDNISOLONE TAPER
     Route: 048
     Dates: start: 20140825
  6. CARMEN (GERMANY) [Concomitant]
     Active Substance: LERCANIDIPINE HYDROCHLORIDE
     Route: 048
     Dates: start: 201012
  7. PREDNISONE. [Suspect]
     Active Substance: PREDNISONE
     Indication: TEMPORAL ARTERITIS
     Route: 048
     Dates: start: 20140721
  8. ATORVASTATIN [Concomitant]
     Active Substance: ATORVASTATIN
     Route: 048
     Dates: start: 20141014
  9. DICLOFENAC [Concomitant]
     Active Substance: DICLOFENAC
     Route: 062
     Dates: start: 20151212, end: 20160229
  10. TOCILIZUMAB [Suspect]
     Active Substance: TOCILIZUMAB
     Indication: TEMPORAL ARTERITIS
     Dosage: DATE OF MOST RECENT DOSE PRIOR TO AE ONSET: 14/JUL/2015.
     Route: 058
     Dates: start: 20140721

REACTIONS (1)
  - Large intestine polyp [Recovered/Resolved]

NARRATIVE: CASE EVENT DATE: 20151126
